FAERS Safety Report 14335661 (Version 1)
Quarter: 2017Q4

REPORT INFORMATION
  Report Type: Spontaneous
  Country: US (occurrence: US)
  Receive Date: 20171229
  Receipt Date: 20171229
  Transmission Date: 20180321
  Serious: No
  Sender: FDA-Public Use
  Company Number: US-TEVA-2017-US-832705

PATIENT
  Sex: Female
  Weight: 51 kg

DRUGS (12)
  1. AQUANIL [Concomitant]
  2. NASAL SPRAY [Concomitant]
     Active Substance: UNSPECIFIED INGREDIENT
  3. COENZYME Q10 [Concomitant]
     Active Substance: UBIDECARENONE
  4. TYLENOL [Concomitant]
     Active Substance: ACETAMINOPHEN
  5. ARNICA [Concomitant]
     Active Substance: ARNICA MONTANA FLOWER
  6. MAGNESIUM [Concomitant]
     Active Substance: MAGNESIUM
  7. BENADRYL [Concomitant]
     Active Substance: DIPHENHYDRAMINE HYDROCHLORIDE
     Route: 048
  8. SYNRIBO [Suspect]
     Active Substance: OMACETAXINE MEPESUCCINATE
     Indication: CHRONIC MYELOID LEUKAEMIA
     Dosage: DOSAGE STRENGTH: 1.9MG/ 0.54ML
     Route: 058
     Dates: start: 201709
  9. METAMUCIL [Concomitant]
     Active Substance: PLANTAGO SEED
  10. MELATONIN [Concomitant]
     Active Substance: MELATONIN
  11. CITRACAL + D3 [Concomitant]
  12. POTASSIUM [Concomitant]
     Active Substance: POTASSIUM

REACTIONS (9)
  - Injection site erythema [Unknown]
  - Injection site swelling [Unknown]
  - Cough [Unknown]
  - Eye swelling [Unknown]
  - Dyspnoea [Unknown]
  - Nausea [Unknown]
  - Injection site pruritus [Unknown]
  - Ocular hyperaemia [Unknown]
  - Fatigue [Unknown]
